FAERS Safety Report 5668234-6 (Version None)
Quarter: 2008Q1

REPORT INFORMATION
  Report Type: 
  Country: None (occurrence: None)
  Receive Date: 20080313
  Receipt Date: 20080303
  Transmission Date: 20080703
  Serious: Yes (Hospitalization)
  Sender: FDA-Public Use
  Company Number: 2008005784

PATIENT
  Age: 27 Year

DRUGS (2)
  1. DIPHENHYDRAMINE HCL [Suspect]
     Dosage: 100 TABLETS, ORAL
     Route: 048
  2. RISPERDAL [Suspect]
     Dosage: 1 TABLET DAILY (1 MG, 1 IN 1 D), ORAL
     Route: 048

REACTIONS (2)
  - INCORRECT DOSE ADMINISTERED [None]
  - NEUROLEPTIC MALIGNANT SYNDROME [None]
